FAERS Safety Report 24133091 (Version 1)
Quarter: 2024Q3

REPORT INFORMATION
  Report Type: Spontaneous
  Country: CN (occurrence: CN)
  Receive Date: 20240724
  Receipt Date: 20240724
  Transmission Date: 20241017
  Serious: Yes (Hospitalization, Other)
  Sender: MERCK
  Company Number: CN-009507513-2407CHN012161

PATIENT
  Age: 54 Year
  Sex: Female
  Weight: 57 kg

DRUGS (6)
  1. KEYTRUDA [Suspect]
     Active Substance: PEMBROLIZUMAB
     Indication: Chemotherapy
     Dosage: 200 MILLIGRAM, ONCE
     Route: 041
     Dates: start: 20240621, end: 20240621
  2. KEYTRUDA [Suspect]
     Active Substance: PEMBROLIZUMAB
     Indication: Laryngeal cancer recurrent
  3. CAPECITABINE [Suspect]
     Active Substance: CAPECITABINE
     Indication: Chemotherapy
     Dosage: 1.5 GRAM, BID
     Route: 048
     Dates: start: 20240622, end: 20240705
  4. CAPECITABINE [Suspect]
     Active Substance: CAPECITABINE
     Indication: Laryngeal cancer recurrent
  5. NEDAPLATIN [Suspect]
     Active Substance: NEDAPLATIN
     Indication: Chemotherapy
     Dosage: 100 MILLIGRAM, ONCE
     Route: 041
     Dates: start: 20240622, end: 20240622
  6. NEDAPLATIN [Suspect]
     Active Substance: NEDAPLATIN
     Indication: Laryngeal cancer recurrent

REACTIONS (1)
  - Myelosuppression [Recovering/Resolving]

NARRATIVE: CASE EVENT DATE: 20240711
